FAERS Safety Report 10043129 (Version 1)
Quarter: 2014Q1

REPORT INFORMATION
  Report Type: Spontaneous
  Country: US (occurrence: US)
  Receive Date: 20140328
  Receipt Date: 20140328
  Transmission Date: 20141002
  Serious: No
  Sender: FDA-Public Use
  Company Number: US-009507513-1403USA010647

PATIENT
  Sex: Female

DRUGS (4)
  1. PEGINTRON [Suspect]
     Indication: HEPATITIS C
     Dosage: 0.5 ML, Q7DAYS
     Dates: start: 20140320
  2. REBETOL [Suspect]
     Indication: HEPATITIS C
     Dosage: 800 MG, BID
     Route: 048
     Dates: start: 20140320
  3. SOVALDI [Concomitant]
     Dosage: UNK
  4. WARFARIN [Concomitant]

REACTIONS (2)
  - Pain [Unknown]
  - Pain [Unknown]
